FAERS Safety Report 4532058-3 (Version None)
Quarter: 2004Q4

REPORT INFORMATION
  Report Type: 
  Country: None (occurrence: None)
  Receive Date: 20041220
  Receipt Date: 20041129
  Transmission Date: 20050328
  Serious: Yes (Hospitalization)
  Sender: FDA-Public Use
  Company Number: DE-GLAXOSMITHKLINE-D0045366A

PATIENT
  Sex: Male
  Weight: 106 kg

DRUGS (4)
  1. AVANDIA [Suspect]
     Indication: DIABETES MELLITUS NON-INSULIN-DEPENDENT
     Dosage: 4MG PER DAY
     Route: 048
  2. METFORMIN HCL [Concomitant]
     Indication: DIABETES MELLITUS NON-INSULIN-DEPENDENT
     Dosage: 850MG THREE TIMES PER DAY
     Route: 048
  3. CONCOR [Concomitant]
     Dosage: 2.5MG PER DAY
     Route: 048
  4. PANTOZOL [Concomitant]
     Dosage: 20MG TWICE PER DAY
     Route: 048

REACTIONS (4)
  - ASCITES [None]
  - GENERALISED OEDEMA [None]
  - OEDEMA PERIPHERAL [None]
  - WEIGHT INCREASED [None]
